FAERS Safety Report 12517511 (Version 1)
Quarter: 2016Q2

REPORT INFORMATION
  Report Type: Spontaneous
  Country: US (occurrence: US)
  Receive Date: 20160630
  Receipt Date: 20160630
  Transmission Date: 20160815
  Serious: Yes (Other)
  Sender: FDA-Public Use
  Company Number: US-JNJFOC-20160625643

PATIENT
  Sex: Female
  Weight: 114.31 kg

DRUGS (2)
  1. LEVAQUIN [Suspect]
     Active Substance: LEVOFLOXACIN
     Indication: PRODUCT USED FOR UNKNOWN INDICATION
     Route: 065
  2. LEVOXYL [Concomitant]
     Active Substance: LEVOTHYROXINE SODIUM
     Indication: HYPOTHYROIDISM
     Route: 048

REACTIONS (6)
  - Dyspnoea [Unknown]
  - Oropharyngeal pain [Unknown]
  - Middle ear effusion [Unknown]
  - Hypopnoea [Unknown]
  - Pulmonary oedema [Unknown]
  - Migraine [Unknown]
